FAERS Safety Report 15566238 (Version 1)
Quarter: 2018Q4

REPORT INFORMATION
  Report Type: Spontaneous
  Country: CZ (occurrence: CZ)
  Receive Date: 20181030
  Receipt Date: 20181030
  Transmission Date: 20190205
  Serious: Yes (Hospitalization, Other)
  Sender: FDA-Public Use
  Company Number: CZ-BAYER-2018-198449

PATIENT
  Age: 82 Year
  Sex: Female

DRUGS (5)
  1. PERINDOPRIL [Concomitant]
     Active Substance: PERINDOPRIL
     Dosage: 5 MG, QD
  2. ACETYLSALICYLIC ACID({=100 MG) [Suspect]
     Active Substance: ASPIRIN
     Indication: ANTIPLATELET THERAPY
     Dosage: 100 MG, QD
  3. CLOPIDOGREL [Interacting]
     Active Substance: CLOPIDOGREL BISULFATE
     Indication: ANTIPLATELET THERAPY
     Dosage: 75 MG, QD
  4. BISOPROLOL [Concomitant]
     Active Substance: BISOPROLOL
     Dosage: 2.5 MG, QD
  5. ATORVASTATIN [Concomitant]
     Active Substance: ATORVASTATIN
     Dosage: 20 MG, QD

REACTIONS (11)
  - Acute kidney injury [Not Recovered/Not Resolved]
  - Fluid overload [Not Recovered/Not Resolved]
  - Haematuria [Unknown]
  - Spontaneous haematoma [Unknown]
  - Renal failure [Not Recovered/Not Resolved]
  - Epistaxis [Unknown]
  - Nephropathy [Not Recovered/Not Resolved]
  - Metabolic acidosis [Unknown]
  - Overdose [Unknown]
  - Hyperkalaemia [Not Recovered/Not Resolved]
  - Labelled drug-drug interaction medication error [None]
